FAERS Safety Report 6035271-1 (Version None)
Quarter: 2009Q1

REPORT INFORMATION
  Report Type: 
  Country: None (occurrence: None)
  Receive Date: 20090109
  Receipt Date: 20090102
  Transmission Date: 20090719
  Serious: Yes (Life-Threatening, Other)
  Sender: FDA-Public Use
  Company Number: 230908K08USA

PATIENT
  Age: 54 Year

DRUGS (11)
  1. REBIF [Suspect]
     Indication: MULTIPLE SCLEROSIS
     Dosage: 44 MCG, 3 IN 1 WEEKS, SUBCUTANEOUS
     Route: 058
     Dates: start: 20080418, end: 20080718
  2. ATACAND [Concomitant]
  3. PROVOGIL (MODAFINIL) [Concomitant]
  4. ASPIRIN [Concomitant]
  5. LEXAPRO [Concomitant]
  6. NEURONTIN [Concomitant]
  7. HYDROCODONE APAP (PROCET) [Concomitant]
  8. WELLBUTRIN XL [Concomitant]
  9. HYDROCORTISONE CREAM(HYDROCORTISONE) [Concomitant]
  10. DILACOR ER (DIOLTIAZEM) [Concomitant]
  11. FOLTX (TRIOBE) [Concomitant]

REACTIONS (2)
  - MYELODYSPLASTIC SYNDROME [None]
  - THROMBOSIS [None]
